FAERS Safety Report 6832232-7 (Version None)
Quarter: 2010Q3

REPORT INFORMATION
  Report Type: 
  Country: None (occurrence: None)
  Receive Date: 20100707
  Receipt Date: 20100628
  Transmission Date: 20110219
  Serious: Yes (Hospitalization)
  Sender: FDA-Public Use
  Company Number: 2010US002544

PATIENT
  Age: 31 Year
  Sex: Female

DRUGS (6)
  1. PROGRAF [Suspect]
     Indication: RENAL TRANSPLANT
     Dosage: 5 MG,
     Dates: start: 20100317
  2. PREDNISOLONE [Concomitant]
  3. MYCOPHENOLATE MOFETIL [Concomitant]
  4. TRIMETOPRIM (TRIMETOPRIM) [Concomitant]
  5. NISTATIN (NYSTATIN) [Concomitant]
  6. LOSARTAN (LOSARTAN) [Concomitant]

REACTIONS (3)
  - BONE PAIN [None]
  - DIARRHOEA [None]
  - DYSPNOEA [None]
